FAERS Safety Report 14276713 (Version 1)
Quarter: 2017Q4

REPORT INFORMATION
  Report Type: Spontaneous
  Country: DE (occurrence: DE)
  Receive Date: 20171212
  Receipt Date: 20171212
  Transmission Date: 20180321
  Serious: Yes (Hospitalization, Other)
  Sender: FDA-Public Use
  Company Number: DE-PFIZER INC-2017523787

PATIENT
  Age: 38 Year
  Sex: Male

DRUGS (5)
  1. SODIUM VALPROATE [Concomitant]
     Active Substance: VALPROATE SODIUM
     Dosage: UNK
  2. PRIMAXIN IV [Interacting]
     Active Substance: CILASTATIN SODIUM\IMIPENEM
     Indication: PNEUMONIA
     Dosage: UNK
  3. LAMOTRIGINE. [Concomitant]
     Active Substance: LAMOTRIGINE
     Dosage: UNK
  4. ZONISAMIDE. [Concomitant]
     Active Substance: ZONISAMIDE
     Dosage: UNK
  5. LEVETIRACETAM. [Suspect]
     Active Substance: LEVETIRACETAM
     Dosage: UNK

REACTIONS (6)
  - Partial seizures [Recovered/Resolved]
  - Altered state of consciousness [Unknown]
  - Drug interaction [Unknown]
  - Generalised tonic-clonic seizure [Recovered/Resolved]
  - Pneumonia [Unknown]
  - Status epilepticus [Recovered/Resolved]
